FAERS Safety Report 7934335-2 (Version None)
Quarter: 2011Q4

REPORT INFORMATION
  Report Type: 
  Country: None (occurrence: None)
  Receive Date: 20111122
  Receipt Date: 20111118
  Transmission Date: 20120403
  Serious: Yes (Hospitalization)
  Sender: FDA-Public Use
  Company Number: US-GLAXOSMITHKLINE-A0871790A

PATIENT
  Sex: Male
  Weight: 119.1 kg

DRUGS (1)
  1. AVANDIA [Suspect]
     Indication: DIABETES MELLITUS
     Dosage: 8MG PER DAY
     Dates: start: 20021001, end: 20070601

REACTIONS (4)
  - MYOCARDIAL ISCHAEMIA [None]
  - CARDIAC ENZYMES INCREASED [None]
  - EMOTIONAL DISTRESS [None]
  - CHEST PAIN [None]
